FAERS Safety Report 4616435-8 (Version None)
Quarter: 2005Q1

REPORT INFORMATION
  Report Type: 
  Country: None (occurrence: None)
  Receive Date: 20050318
  Receipt Date: 20050311
  Transmission Date: 20050727
  Serious: Yes (Hospitalization, Other)
  Sender: FDA-Public Use
  Company Number: KII-2005-0015459

PATIENT
  Age: 63 Year
  Sex: Female

DRUGS (2)
  1. OXYCODONE HCL [Suspect]
     Indication: DRUG USE FOR UNKNOWN INDICATION
     Dosage: ORAL
     Route: 048
  2. BENZODIAZEPINE DERIVATIVES) [Suspect]
     Indication: DRUG USE FOR UNKNOWN INDICATION
     Dosage: ORAL
     Route: 048

REACTIONS (10)
  - CARDIAC DISORDER [None]
  - COMA [None]
  - HYPERTENSION [None]
  - INTUBATION COMPLICATION [None]
  - LARYNGEAL OEDEMA [None]
  - MULTIPLE DRUG OVERDOSE [None]
  - PNEUMONIA ASPIRATION [None]
  - POLYP [None]
  - STRIDOR [None]
  - THERAPY NON-RESPONDER [None]
